FAERS Safety Report 4544654-8 (Version None)
Quarter: 2004Q4

REPORT INFORMATION
  Report Type: 
  Country: None (occurrence: None)
  Receive Date: 20041230
  Receipt Date: 20041216
  Transmission Date: 20050328
  Serious: Yes (Hospitalization)
  Sender: FDA-Public Use
  Company Number: 2004096740

PATIENT
  Age: 8 Year
  Sex: Female
  Weight: 22.4 kg

DRUGS (6)
  1. CELEBREX [Suspect]
     Indication: JUVENILE ARTHRITIS
     Dosage: 10 MG (5ML, 2 IN 1D), ORAL
     Route: 048
     Dates: start: 20041020, end: 20041117
  2. RANITIDINE HYDROCHLORIDE (RANITIDINE HYDROCHLORIDE0 [Concomitant]
  3. METHOTREXATE [Concomitant]
  4. FOLIC ACID (FOLIC ACID0 [Concomitant]
  5. MULTIVITAMINS (ASCORBIC ACID, ERGOCALCIFEROL, FOLIC ACID, NICOTINAMIDE [Concomitant]
  6. ACETAMINOPHEN [Concomitant]

REACTIONS (3)
  - CYTOMEGALOVIRUS HEPATITIS [None]
  - HEPATIC TRAUMA [None]
  - HEPATITIS ACUTE [None]
